FAERS Safety Report 5359006-0 (Version None)
Quarter: 2007Q2

REPORT INFORMATION
  Report Type: 
  Country: None (occurrence: None)
  Receive Date: 20070601
  Receipt Date: 20070309
  Transmission Date: 20071010
  Serious: No
  Sender: FDA-Public Use
  Company Number: PHEH2007US02982

PATIENT
  Age: 42 Year
  Sex: Female

DRUGS (2)
  1. ENABLEX [Suspect]
     Indication: HYPERTONIC BLADDER
     Dosage: 15 MG, QD, ORAL
     Route: 048
     Dates: start: 20070101, end: 20070301
  2. ENABLEX [Suspect]
     Indication: HYPERTONIC BLADDER
     Dosage: 15 MG, QD, ORAL
     Route: 048
     Dates: start: 20070308

REACTIONS (1)
  - ABDOMINAL PAIN [None]
